FAERS Safety Report 20130114 (Version 1)
Quarter: 2021Q4

REPORT INFORMATION
  Report Type: Report from Study
  Country: CO (occurrence: CO)
  Receive Date: 20211130
  Receipt Date: 20211130
  Transmission Date: 20220303
  Serious: Yes (Death, Hospitalization, Other)
  Sender: FDA-Public Use
  Company Number: CO-ASTELLAS-2021US044088

PATIENT
  Age: 83 Year
  Sex: Male
  Weight: 45 kg

DRUGS (3)
  1. ENZALUTAMIDE [Suspect]
     Active Substance: ENZALUTAMIDE
     Indication: Hormone-refractory prostate cancer
     Route: 048
     Dates: start: 20210929, end: 20211110
  2. CIPROFLOXACIN [Suspect]
     Active Substance: CIPROFLOXACIN
     Indication: Urinary tract infection
     Route: 065
     Dates: start: 20211113
  3. CIPROFLOXACIN [Suspect]
     Active Substance: CIPROFLOXACIN
     Indication: Hypersensitivity

REACTIONS (14)
  - Cardio-respiratory arrest [Fatal]
  - Urinary tract infection [Not Recovered/Not Resolved]
  - Drug hypersensitivity [Not Recovered/Not Resolved]
  - Food allergy [Not Recovered/Not Resolved]
  - Rash erythematous [Not Recovered/Not Resolved]
  - Somnolence [Not Recovered/Not Resolved]
  - Decreased appetite [Not Recovered/Not Resolved]
  - Pruritus [Not Recovered/Not Resolved]
  - Rash [Not Recovered/Not Resolved]
  - Flatulence [Unknown]
  - Diarrhoea [Unknown]
  - Dehydration [Unknown]
  - Red man syndrome [Unknown]
  - Renal failure [Unknown]

NARRATIVE: CASE EVENT DATE: 20211102
